FAERS Safety Report 12357775 (Version 2)
Quarter: 2016Q2

REPORT INFORMATION
  Report Type: Spontaneous
  Country: US (occurrence: US)
  Receive Date: 20160512
  Receipt Date: 20160609
  Transmission Date: 20160815
  Serious: Yes (Other)
  Sender: FDA-Public Use
  Company Number: US-SHIRE-US201605426

PATIENT
  Sex: Male

DRUGS (1)
  1. INTUNIV [Suspect]
     Active Substance: GUANFACINE HYDROCHLORIDE
     Indication: HYPERTENSION
     Dosage: 2 MG, 1X/DAY:QD (HS)
     Route: 048

REACTIONS (2)
  - Product use issue [Not Recovered/Not Resolved]
  - Cataract [Unknown]
